FAERS Safety Report 4329141-4 (Version None)
Quarter: 2004Q1

REPORT INFORMATION
  Report Type: 
  Country: None (occurrence: None)
  Receive Date: 20040319
  Receipt Date: 20040217
  Transmission Date: 20041129
  Serious: No
  Sender: FDA-Public Use
  Company Number: US-JNJFOC-20040204510

PATIENT
  Sex: Male

DRUGS (1)
  1. ORTHO EVRA [Suspect]
     Dosage: OTHER

REACTIONS (1)
  - BURNING SENSATION [None]
